FAERS Safety Report 6694652-3 (Version None)
Quarter: 2010Q2

REPORT INFORMATION
  Report Type: 
  Country: None (occurrence: None)
  Receive Date: 20100423
  Receipt Date: 20100413
  Transmission Date: 20101027
  Serious: Yes (Hospitalization)
  Sender: FDA-Public Use
  Company Number: GXKR2010US04168

PATIENT
  Age: 34 Year
  Sex: Female

DRUGS (2)
  1. PROPRANOLOL [Suspect]
     Route: 048
  2. CLONAZEPAM [Concomitant]

REACTIONS (7)
  - BRADYCARDIA [None]
  - BRUGADA SYNDROME [None]
  - ENDOTRACHEAL INTUBATION [None]
  - HYPOTENSION [None]
  - HYPOVENTILATION [None]
  - INTENTIONAL OVERDOSE [None]
  - UNRESPONSIVE TO STIMULI [None]
